FAERS Safety Report 13122625 (Version 1)
Quarter: 2017Q1

REPORT INFORMATION
  Report Type: Spontaneous
  Country: US (occurrence: US)
  Receive Date: 20170117
  Receipt Date: 20170117
  Transmission Date: 20170428
  Serious: No
  Sender: FDA-Public Use
  Company Number: US-ALLERGAN-1612003US

PATIENT
  Age: 22 Year
  Sex: Female

DRUGS (3)
  1. CETAPHIL SOAP [Concomitant]
     Indication: ACNE
     Dosage: UNK, QD
     Route: 061
  2. NIVEA SKIN CREAM [Concomitant]
     Indication: ACNE
     Dosage: UNK
     Route: 061
  3. ACZONE [Suspect]
     Active Substance: DAPSONE
     Indication: ACNE
     Dosage: UNK, BID
     Route: 061
     Dates: start: 20160108

REACTIONS (2)
  - Skin exfoliation [Not Recovered/Not Resolved]
  - Pigmentation disorder [Not Recovered/Not Resolved]

NARRATIVE: CASE EVENT DATE: 20160108
